FAERS Safety Report 6971709-0 (Version None)
Quarter: 2010Q3

REPORT INFORMATION
  Report Type: 
  Country: None (occurrence: None)
  Receive Date: 20100908
  Receipt Date: 20090923
  Transmission Date: 20110219
  Serious: No
  Sender: FDA-Public Use
  Company Number: US-PFIZER INC-2009254198

PATIENT
  Sex: Male
  Weight: 90.703 kg

DRUGS (3)
  1. NARDIL [Suspect]
     Indication: PANIC DISORDER
     Dosage: 45MG/DAY
     Route: 048
  2. NARDIL [Suspect]
     Indication: DEPRESSION
  3. CLONAZEPAM [Concomitant]
     Dosage: UNK

REACTIONS (5)
  - ASTHENIA [None]
  - BLOOD PRESSURE FLUCTUATION [None]
  - COLD SWEAT [None]
  - DEHYDRATION [None]
  - VISUAL ACUITY REDUCED [None]
